FAERS Safety Report 7943081-0 (Version None)
Quarter: 2011Q4

REPORT INFORMATION
  Report Type: 
  Country: None (occurrence: None)
  Receive Date: 20111128
  Receipt Date: 20111109
  Transmission Date: 20120403
  Serious: Yes (Hospitalization)
  Sender: FDA-Public Use
  Company Number: NL-BAYER-2011-113777

PATIENT
  Age: 72 Year
  Sex: Male

DRUGS (4)
  1. CLINDAMYCIN [Suspect]
     Indication: PROPHYLAXIS
     Dosage: 600 MG, TID
     Route: 048
     Dates: start: 20110913
  2. METFORMIN HCL [Concomitant]
     Dosage: 850 MG, TID
  3. NOVOMIX [INSULIN ASPART] [Concomitant]
     Dosage: 30 INSULIN (NOS)
  4. CIPROFLAXACIN [Suspect]
     Indication: PROPHYLAXIS
     Dosage: 750 MG, BID
     Route: 048
     Dates: start: 20111013

REACTIONS (1)
  - HYPOGLYCAEMIA [None]
